FAERS Safety Report 10511913 (Version 3)
Quarter: 2015Q1

REPORT INFORMATION
  Report Type: Spontaneous
  Country: IT (occurrence: IT)
  Receive Date: 20141010
  Receipt Date: 20150213
  Transmission Date: 20150720
  Serious: Yes (Hospitalization)
  Sender: FDA-Public Use
  Company Number: IT-PFIZER INC-2014276975

PATIENT
  Age: 53 Year
  Sex: Female

DRUGS (4)
  1. EDRONAX [Suspect]
     Active Substance: REBOXETINE MESYLATE
     Dosage: 240 MG,TOTAL
     Route: 048
     Dates: start: 20140916, end: 20140916
  2. XANAX [Suspect]
     Active Substance: ALPRAZOLAM
     Dosage: 1 MG, DAILY
     Route: 048
     Dates: start: 2014
  3. XANAX [Suspect]
     Active Substance: ALPRAZOLAM
     Dosage: 10 MG, TOTAL
     Route: 048
     Dates: start: 20140916, end: 20140916
  4. EDRONAX [Suspect]
     Active Substance: REBOXETINE MESYLATE
     Dosage: 1 DF, DAILY
     Route: 048
     Dates: start: 2014

REACTIONS (2)
  - Sopor [Recovered/Resolved]
  - Drug abuse [Recovered/Resolved]

NARRATIVE: CASE EVENT DATE: 20140916
